FAERS Safety Report 16984882 (Version 4)
Quarter: 2020Q3

REPORT INFORMATION
  Report Type: Spontaneous
  Country: CO (occurrence: CO)
  Receive Date: 20191101
  Receipt Date: 20200806
  Transmission Date: 20201102
  Serious: Yes (Hospitalization, Other)
  Sender: FDA-Public Use
  Company Number: CO-CELGENEUS-COL-20190909898

PATIENT
  Age: 63 Year
  Sex: Female

DRUGS (2)
  1. ABRAXANE [Suspect]
     Active Substance: PACLITAXEL
     Indication: PANCREATIC CARCINOMA
     Dosage: 100 MILLIGRAM
     Route: 041
     Dates: start: 20171110, end: 20200715
  2. GEMCITABINE. [Concomitant]
     Active Substance: GEMCITABINE
     Indication: PRODUCT USED FOR UNKNOWN INDICATION
     Route: 065

REACTIONS (13)
  - Vomiting [Not Recovered/Not Resolved]
  - Back pain [Not Recovered/Not Resolved]
  - Cholangitis [Not Recovered/Not Resolved]
  - Chills [Recovered/Resolved]
  - Vomiting [Not Recovered/Not Resolved]
  - Arterial thrombosis [Recovered/Resolved]
  - Hepatic mass [Not Recovered/Not Resolved]
  - Pyrexia [Not Recovered/Not Resolved]
  - Device occlusion [Not Recovered/Not Resolved]
  - Diarrhoea [Recovered/Resolved]
  - Vomiting [Recovered/Resolved]
  - Dyspepsia [Not Recovered/Not Resolved]
  - Decreased appetite [Not Recovered/Not Resolved]

NARRATIVE: CASE EVENT DATE: 20190809
